FAERS Safety Report 10310376 (Version 1)
Quarter: 2014Q3

REPORT INFORMATION
  Report Type: Spontaneous
  Country: US (occurrence: None)
  Receive Date: 20140716
  Receipt Date: 20140716
  Transmission Date: 20150326
  Serious: Yes (Disabling)
  Sender: FDA-Public Use
  Company Number: None

PATIENT
  Age: 54 Year
  Sex: Female
  Weight: 77.11 kg

DRUGS (3)
  1. DULOXETINE DR [Suspect]
     Active Substance: DULOXETINE
     Indication: DEPRESSION
     Dosage: 1 PILL ONCE DAIY TAKEN BY MOUTH
     Route: 048
     Dates: start: 20140601, end: 20140715
  2. DULOXETINE DR [Suspect]
     Active Substance: DULOXETINE
     Indication: PAIN
     Dosage: 1 PILL ONCE DAIY TAKEN BY MOUTH
     Route: 048
     Dates: start: 20140601, end: 20140715
  3. DULOXETINE DR [Suspect]
     Active Substance: DULOXETINE
     Indication: ANXIETY
     Dosage: 1 PILL ONCE DAIY TAKEN BY MOUTH
     Route: 048
     Dates: start: 20140601, end: 20140715

REACTIONS (11)
  - Decreased interest [None]
  - Chills [None]
  - Fatigue [None]
  - Hyperhidrosis [None]
  - Headache [None]
  - Respiratory disorder [None]
  - Back pain [None]
  - Product substitution issue [None]
  - Muscle spasms [None]
  - Arthritis [None]
  - Nausea [None]

NARRATIVE: CASE EVENT DATE: 20140615
